FAERS Safety Report 10986426 (Version 1)
Quarter: 2015Q2

REPORT INFORMATION
  Report Type: Spontaneous
  Country: None (occurrence: None)
  Receive Date: 20150403
  Receipt Date: 20150403
  Transmission Date: 20150821
  Serious: Yes (Hospitalization, Disabling, Other)
  Sender: FDA-Public Use
  Company Number: None

PATIENT
  Age: 40 Year
  Sex: Female
  Weight: 74.84 kg

DRUGS (11)
  1. VITAMIN D [Concomitant]
     Active Substance: CHOLECALCIFEROL
  2. CALCIUM [Concomitant]
     Active Substance: CALCIUM
  3. MIRENA [Concomitant]
     Active Substance: LEVONORGESTREL
  4. VITAMIN E [Concomitant]
     Active Substance: .ALPHA.-TOCOPHEROL
  5. VITAMIN B12 [Concomitant]
     Active Substance: CYANOCOBALAMIN
  6. NIACIN. [Concomitant]
     Active Substance: NIACIN
  7. ZINC [Concomitant]
     Active Substance: ZINC\ZINC CHLORIDE
  8. MIRENA [Suspect]
     Active Substance: LEVONORGESTREL
  9. PREDNISONE. [Concomitant]
     Active Substance: PREDNISONE
  10. VALACYCLOVIR HCL [Concomitant]
     Active Substance: VALACYCLOVIR HYDROCHLORIDE
  11. VITAMIN B12 [Concomitant]
     Active Substance: CYANOCOBALAMIN

REACTIONS (4)
  - Impaired work ability [None]
  - Deformity [None]
  - Speech disorder [None]
  - VIIth nerve paralysis [None]

NARRATIVE: CASE EVENT DATE: 20141112
